FAERS Safety Report 6385898-2 (Version None)
Quarter: 2009Q4

REPORT INFORMATION
  Report Type: 
  Country: None (occurrence: None)
  Receive Date: 20091002
  Receipt Date: 20090217
  Transmission Date: 20100525
  Serious: Yes (Other)
  Sender: FDA-Public Use
  Company Number: US-ASTRAZENECA-2009UW04470

PATIENT
  Age: 786 Month
  Sex: Female
  Weight: 86.2 kg

DRUGS (4)
  1. ARIMIDEX [Suspect]
     Indication: BREAST CANCER
     Route: 048
     Dates: start: 20061201, end: 20090217
  2. HYDROCHLOROTHIAZIDE [Concomitant]
     Route: 048
  3. TYLENOL (CAPLET) [Concomitant]
     Route: 048
  4. CALCIUM [Concomitant]
     Route: 048

REACTIONS (1)
  - BREAST CANCER RECURRENT [None]
